FAERS Safety Report 8489818-6 (Version None)
Quarter: 2012Q3

REPORT INFORMATION
  Report Type: 
  Country: None (occurrence: None)
  Receive Date: 20120705
  Receipt Date: 20120626
  Transmission Date: 20120928
  Serious: Yes (Hospitalization)
  Sender: FDA-Public Use
  Company Number: JP-VERTEX PHARMACEUTICALS INC.-AE-2012-009633

PATIENT
  Age: 58 Year
  Sex: Male

DRUGS (11)
  1. TELAVIC (TELAPREVIR) [Suspect]
     Route: 048
     Dates: start: 20120416, end: 20120618
  2. REBETOL [Concomitant]
     Route: 048
     Dates: start: 20120501, end: 20120508
  3. SEROQUEL [Concomitant]
     Route: 048
     Dates: start: 20120401
  4. REBETOL [Concomitant]
     Route: 048
     Dates: start: 20120416, end: 20120430
  5. ACETAMINOPHEN [Concomitant]
     Route: 048
     Dates: start: 20120326
  6. URSO 250 [Concomitant]
     Route: 048
  7. TELAVIC (TELAPREVIR) [Suspect]
     Indication: HEPATITIS C
     Route: 048
     Dates: start: 20120326, end: 20120415
  8. REBETOL [Concomitant]
     Route: 048
     Dates: start: 20120509
  9. PEG-INTRON [Concomitant]
     Indication: HEPATITIS C
     Route: 058
     Dates: start: 20120326
  10. REBETOL [Concomitant]
     Indication: HEPATITIS C
     Route: 048
     Dates: start: 20120326, end: 20120415
  11. COSPANON [Concomitant]
     Route: 048

REACTIONS (1)
  - PANCREATITIS ACUTE [None]
